FAERS Safety Report 16865702 (Version 1)
Quarter: 2019Q3

REPORT INFORMATION
  Report Type: Spontaneous
  Country: SE (occurrence: SE)
  Receive Date: 20190930
  Receipt Date: 20190930
  Transmission Date: 20191005
  Serious: Yes (Hospitalization)
  Sender: FDA-Public Use
  Company Number: SE-TEVA-2019-SE-1114029

PATIENT
  Age: 44 Year
  Sex: Female

DRUGS (1)
  1. PROMETHAZINE [Suspect]
     Active Substance: PROMETHAZINE HYDROCHLORIDE
     Dosage: 30-35 X 25 MG
     Route: 048
     Dates: start: 20181206, end: 20181206

REACTIONS (5)
  - Incoherent [Unknown]
  - Intentional overdose [Unknown]
  - Intentional self-injury [Unknown]
  - Lethargy [Unknown]
  - Tachycardia [Unknown]

NARRATIVE: CASE EVENT DATE: 20181206
